FAERS Safety Report 9630190 (Version 1)
Quarter: 2013Q4

REPORT INFORMATION
  Report Type: Spontaneous
  Country: US (occurrence: US)
  Receive Date: 20131017
  Receipt Date: 20131017
  Transmission Date: 20140711
  Serious: Yes (Hospitalization, Other)
  Sender: FDA-Public Use
  Company Number: US-ACTAVIS-2013-18199

PATIENT
  Age: 79 Year
  Sex: Male

DRUGS (15)
  1. METOCLOPRAMIDE (WATSON LABORATORIES) [Suspect]
     Indication: GASTROINTESTINAL MOTILITY DISORDER
     Dosage: 10 MG, Q6H
     Route: 042
  2. MORPHINE [Concomitant]
     Indication: PRODUCT USED FOR UNKNOWN INDICATION
     Dosage: 10 MG, TOTAL AMOUNT GIVEN IN POSTOPERATIVE RECOVERY
     Route: 042
  3. MORPHINE [Concomitant]
     Dosage: 2 MG, Q1H, AS NEEDED
     Route: 042
  4. ERTAPENEM [Concomitant]
     Indication: PRODUCT USED FOR UNKNOWN INDICATION
     Dosage: 1 G, BID
     Route: 042
  5. ONDANSETRON [Concomitant]
     Indication: PRODUCT USED FOR UNKNOWN INDICATION
     Dosage: 4 MG, SINGLE
     Route: 042
  6. NEOSTIGMINE METHYLSULFATE [Concomitant]
     Indication: PRODUCT USED FOR UNKNOWN INDICATION
     Dosage: 5 MG, SINGLE
     Route: 042
  7. GLYCOPYRROLATE                     /00196201/ [Concomitant]
     Indication: PRODUCT USED FOR UNKNOWN INDICATION
     Dosage: 1 MG, SINGLE
     Route: 042
  8. FAMOTIDINE [Concomitant]
     Indication: PRODUCT USED FOR UNKNOWN INDICATION
     Dosage: 20 MG, BID
     Route: 042
  9. METOPROLOL TARTRATE [Concomitant]
     Indication: PRODUCT USED FOR UNKNOWN INDICATION
     Dosage: 25 MG, BID
     Route: 048
  10. METOPROLOL TARTRATE [Concomitant]
     Dosage: 5 MG, SINGLE
     Route: 042
  11. INSULIN HUMAN [Concomitant]
     Indication: DIABETES MELLITUS
     Dosage: 3 UNITS, UNK
     Route: 058
  12. CARBIDOPA + L-DOPA [Concomitant]
     Indication: PRODUCT USED FOR UNKNOWN INDICATION
     Dosage: 100 MG/400 MG, EVERY 12 HOURS
     Route: 048
  13. LISINOPRIL [Concomitant]
     Indication: PRODUCT USED FOR UNKNOWN INDICATION
     Dosage: 10 MG, DAILY
     Route: 048
  14. FUROSEMIDE [Concomitant]
     Indication: PRODUCT USED FOR UNKNOWN INDICATION
     Dosage: 20 MG, DAILY
     Route: 048
  15. POLYETHYLENE GLYCOL [Concomitant]
     Indication: CONSTIPATION
     Dosage: 17 G, DAILY, AS NEEDED
     Route: 048

REACTIONS (2)
  - Metabolic encephalopathy [Recovering/Resolving]
  - Parkinsonism [Recovering/Resolving]
